FAERS Safety Report 23175051 (Version 1)
Quarter: 2023Q4

REPORT INFORMATION
  Report Type: Report from Study
  Country: TR (occurrence: TR)
  Receive Date: 20231112
  Receipt Date: 20231112
  Transmission Date: 20240110
  Serious: Yes (Death)
  Sender: FDA-Public Use
  Company Number: TR-ABBVIE-5490985

PATIENT
  Age: 83 Year
  Sex: Female
  Weight: 46 kg

DRUGS (3)
  1. CARBIDOPA\LEVODOPA [Suspect]
     Active Substance: CARBIDOPA\LEVODOPA
     Indication: Parkinson^s disease
     Dosage: MORNING DOSE (ML): 15.00 CONTINIOUS DOSE (ML): 4.00 EXTRA DOSE (ML): 2.00
     Route: 050
     Dates: start: 20220319
  2. CARBIDOPA\LEVODOPA [Suspect]
     Active Substance: CARBIDOPA\LEVODOPA
  3. Epamor [Concomitant]
     Indication: Parkinson^s disease
     Dosage: 80 MILLIGRAM?EPAMOR 50 MG/5 ML VIAL
     Dates: start: 2020, end: 20220401

REACTIONS (1)
  - Death [Fatal]

NARRATIVE: CASE EVENT DATE: 20231030
